FAERS Safety Report 7229023-4 (Version None)
Quarter: 2011Q1

REPORT INFORMATION
  Report Type: 
  Country: None (occurrence: None)
  Receive Date: 20110117
  Receipt Date: 20110110
  Transmission Date: 20110831
  Serious: Yes (Other)
  Sender: FDA-Public Use
  Company Number: CA-JNJFOC-20110102521

PATIENT
  Age: 47 Year
  Sex: Female

DRUGS (1)
  1. RISPERDAL [Suspect]
     Indication: SCHIZOPHRENIA
     Route: 065
     Dates: start: 20050901, end: 20051101

REACTIONS (6)
  - SELF-INJURIOUS IDEATION [None]
  - MENTAL IMPAIRMENT [None]
  - COMMUNICATION DISORDER [None]
  - TACHYCARDIA [None]
  - DECREASED INTEREST [None]
  - AMENORRHOEA [None]
